FAERS Safety Report 5497552-X (Version None)
Quarter: 2007Q4

REPORT INFORMATION
  Report Type: 
  Country: None (occurrence: None)
  Receive Date: 20071025
  Receipt Date: 20061206
  Transmission Date: 20080405
  Serious: No
  Sender: FDA-Public Use
  Company Number: A0630633A

PATIENT
  Sex: Male

DRUGS (3)
  1. ADVAIR DISKUS 100/50 [Suspect]
     Indication: EMPHYSEMA
     Route: 055
  2. ALBUTEROL [Concomitant]
  3. CALCIUM [Concomitant]

REACTIONS (1)
  - APHONIA [None]
